FAERS Safety Report 10218320 (Version 2)
Quarter: 2014Q3

REPORT INFORMATION
  Report Type: Report from Study
  Country: GB (occurrence: GB)
  Receive Date: 20140605
  Receipt Date: 20140910
  Transmission Date: 20150326
  Serious: Yes (Hospitalization)
  Sender: FDA-Public Use
  Company Number: GB-CELGENEUS-167-20785-14054281

PATIENT
  Age: 66 Year
  Sex: Male

DRUGS (3)
  1. DEXAMETHASONE. [Suspect]
     Active Substance: DEXAMETHASONE
     Indication: PLASMA CELL MYELOMA
     Route: 048
     Dates: start: 20130104, end: 20130513
  2. THALIDOMIDE [Suspect]
     Active Substance: THALIDOMIDE
     Indication: PLASMA CELL MYELOMA
     Route: 048
     Dates: start: 20130104, end: 20130523
  3. CYCLOPHOSPHAMIDE. [Suspect]
     Active Substance: CYCLOPHOSPHAMIDE
     Indication: PLASMA CELL MYELOMA
     Route: 048
     Dates: start: 20130104, end: 20130517

REACTIONS (1)
  - Adenocarcinoma of colon [Not Recovered/Not Resolved]

NARRATIVE: CASE EVENT DATE: 20130801
